FAERS Safety Report 11680018 (Version 2)
Quarter: 2015Q4

REPORT INFORMATION
  Report Type: Spontaneous
  Country: US (occurrence: US)
  Receive Date: 20151027
  Receipt Date: 20151104
  Transmission Date: 20160304
  Serious: No
  Sender: FDA-Public Use
  Company Number: US-ELI_LILLY_AND_COMPANY-US201007006823

PATIENT
  Age: 78 Year
  Sex: Female

DRUGS (10)
  1. FORTEO [Suspect]
     Active Substance: TERIPARATIDE
     Dosage: 20 UG, DAILY (1/D)
     Route: 065
  2. TRIAMTERENE AND HYDROCHLOROTHIAZIDE [Concomitant]
     Active Substance: HYDROCHLOROTHIAZIDE\TRIAMTERENE
  3. PRESERVISION LUTEIN EYE VITA.+MIN.SUP.SOFTG. [Concomitant]
  4. VITAMIN D [Concomitant]
     Active Substance: CHOLECALCIFEROL
     Dosage: 4000 IU, DAILY (1/D)
  5. PLAQUENIL [Concomitant]
     Active Substance: HYDROXYCHLOROQUINE SULFATE
  6. CALCIUM [Concomitant]
     Active Substance: CALCIUM
     Dosage: 1000 MG, UNKNOWN
  7. FORTEO [Suspect]
     Active Substance: TERIPARATIDE
     Indication: OSTEOPOROSIS
     Dosage: 20 UG, DAILY (1/D)
     Route: 065
  8. FORTEO [Suspect]
     Active Substance: TERIPARATIDE
     Dosage: 20 UG, QD
     Route: 065
  9. FORTEO [Suspect]
     Active Substance: TERIPARATIDE
     Dosage: 20 UG, QD
     Route: 065
  10. DILTIAZEM HYDROCHLORIDE EXTENDED RELEASE [Concomitant]
     Active Substance: DILTIAZEM HYDROCHLORIDE

REACTIONS (27)
  - Drug ineffective [Unknown]
  - Blood calcium increased [Unknown]
  - Infection [Unknown]
  - Oral discomfort [Unknown]
  - Burning sensation [Unknown]
  - Systemic lupus erythematosus [Not Recovered/Not Resolved]
  - Back pain [Unknown]
  - Excessive cerumen production [Unknown]
  - Somnolence [Unknown]
  - Spinal fracture [Unknown]
  - Urticaria [Not Recovered/Not Resolved]
  - Glossodynia [Unknown]
  - Dementia [Unknown]
  - Influenza [Unknown]
  - Fall [Unknown]
  - Asthenia [Unknown]
  - Intervertebral disc injury [Unknown]
  - Hypoacusis [Unknown]
  - Aphthous ulcer [Unknown]
  - Malaise [Unknown]
  - Cheilitis [Recovering/Resolving]
  - Fatigue [Not Recovered/Not Resolved]
  - Mobility decreased [Not Recovered/Not Resolved]
  - Head injury [Unknown]
  - Feeling abnormal [Unknown]
  - Hearing impaired [Unknown]
  - Pain [Unknown]

NARRATIVE: CASE EVENT DATE: 201007
